FAERS Safety Report 8056406-5 (Version None)
Quarter: 2011Q4

REPORT INFORMATION
  Report Type: 
  Country: None (occurrence: None)
  Receive Date: 20111220
  Receipt Date: 20110509
  Transmission Date: 20120403
  Serious: Yes (Hospitalization, Other)
  Sender: FDA-Public Use
  Company Number: PHHY2011US16731

PATIENT
  Age: 55 Year
  Sex: Male

DRUGS (20)
  1. ZYLOPRIM [Concomitant]
  2. PHOSLO [Concomitant]
  3. LASIX [Concomitant]
  4. SYNTHROID [Concomitant]
  5. FLOMAX [Concomitant]
  6. IMDUR (ISOSORBIDE MONOITATE) [Concomitant]
  7. METOPROLOL TARTRATE [Concomitant]
  8. SINGULAIR [Concomitant]
  9. NEXIUM [Concomitant]
  10. ADVAIR (FLUTICASONE PROPIONATE, SALMETEROL XINAFOATE) INHALER [Concomitant]
  11. MULTIVITAMINS (VITAMINS NOS) [Concomitant]
  12. PACERONE [Concomitant]
  13. DUONEB [Concomitant]
  14. CALCITROL (CALCIUM CARBONATE, EROGOCALCIFEROL, RETINOL) [Concomitant]
  15. CRESTOR [Concomitant]
  16. PROGRAF [Concomitant]
  17. CEFTRIAXONE [Concomitant]
  18. AZITHROMYCIN (AZOTHROMYCIN) [Concomitant]
  19. MYFORTIC [Suspect]
     Indication: RENAL TRANSPLANT
     Dosage: 360 MG, BID, ORAL
     Route: 048
     Dates: start: 20101104
  20. ASPIRIN [Concomitant]

REACTIONS (14)
  - DRY MOUTH [None]
  - CHEST PAIN [None]
  - HAEMATOCHEZIA [None]
  - DYSPNOEA [None]
  - CYTOMEGALOVIRUS INFECTION [None]
  - PULMONARY CONGESTION [None]
  - BLOOD PRESSURE DECREASED [None]
  - MALAISE [None]
  - PRODUCTIVE COUGH [None]
  - RENAL TUBULAR NECROSIS [None]
  - PNEUMONIA LEGIONELLA [None]
  - FLUID OVERLOAD [None]
  - OROPHARYNGEAL PAIN [None]
  - WEIGHT DECREASED [None]
